FAERS Safety Report 6731003-X (Version None)
Quarter: 2010Q2

REPORT INFORMATION
  Report Type: 
  Country: None (occurrence: None)
  Receive Date: 20100514
  Receipt Date: 20100430
  Transmission Date: 20101027
  Serious: Yes (Hospitalization)
  Sender: FDA-Public Use
  Company Number: 201004AGG00932

PATIENT
  Age: 60 Year
  Sex: Male

DRUGS (6)
  1. AGGRASTAT [Suspect]
     Indication: MYOCARDIAL INFARCTION
     Dosage: (1 DOSE/DAILY INTRAVENOUS (NOT OTHERWISE SPECIFIED))
     Route: 042
     Dates: start: 20090720, end: 20090721
  2. LOVENOX [Suspect]
     Indication: MYOCARDIAL INFARCTION
     Dosage: (10000 IU/BID SUBCUTANEOUS)
     Route: 058
     Dates: start: 20090720
  3. ASPIRIN LYSINE (KARDEGIN) [Suspect]
     Indication: MYOCARDIAL INFARCTION
     Dosage: (1 DOSE/DAILY ORAL)
     Route: 048
     Dates: start: 20090720
  4. PLAVIX [Suspect]
     Indication: MYOCARDIAL INFARCTION
     Dosage: (75 MG QD ORAL)
     Route: 048
     Dates: start: 20090720
  5. FELODIPINE [Concomitant]
  6. FENOFIBRATE [Concomitant]

REACTIONS (5)
  - INTRA-ABDOMINAL HAEMATOMA [None]
  - PAIN [None]
  - PERITONEAL HAEMORRHAGE [None]
  - SHOCK HAEMORRHAGIC [None]
  - THROMBOSIS IN DEVICE [None]
